FAERS Safety Report 6356665-0 (Version None)
Quarter: 2009Q3

REPORT INFORMATION
  Report Type: 
  Country: None (occurrence: None)
  Receive Date: 20090915
  Receipt Date: 20090903
  Transmission Date: 20100115
  Serious: Yes (Death, Hospitalization)
  Sender: FDA-Public Use
  Company Number: US-TYCO HEALTHCARE/MALLINCKRODT-T200901569

PATIENT
  Sex: Female

DRUGS (3)
  1. ULTRA-TECHNEKOW [Suspect]
     Indication: SCAN LYMPH NODES
     Dosage: 1.7 MCI, SINGLE
     Route: 058
     Dates: start: 20090720, end: 20090720
  2. TECHNETIUM TC 99M SULFUR COLLOID [Suspect]
     Indication: SCAN LYMPH NODES
     Dosage: UNK MCI, SINGLE
     Route: 058
     Dates: start: 20090720, end: 20090720
  3. ANTIEPILEPTICS [Concomitant]
     Indication: CONVULSION

REACTIONS (5)
  - CONVULSION [None]
  - NAUSEA [None]
  - POST PROCEDURAL SEPSIS [None]
  - SEPSIS [None]
  - VOMITING [None]
